FAERS Safety Report 9769305 (Version 8)
Quarter: 2014Q1

REPORT INFORMATION
  Report Type: Spontaneous
  Country: BE (occurrence: BE)
  Receive Date: 20131218
  Receipt Date: 20140331
  Transmission Date: 20141002
  Serious: Yes (Other)
  Sender: FDA-Public Use
  Company Number: BE-BEH-2013038360

PATIENT
  Age: 12 Year
  Sex: Female

DRUGS (8)
  1. HAEMATE P [Suspect]
     Indication: VON WILLEBRAND^S DISEASE
     Dosage: STOP DATE: ONGOING, FREQUENCY: 2X/WEEK
     Route: 042
     Dates: start: 20130930
  2. HAEMATE P [Suspect]
     Dosage: C2366911B X 2 ON 12-NOV-2013 AND 14-NOV-2013
  3. HAEMATE P [Suspect]
     Dosage: C2366911B X 2 ON 18-NOV-2013
  4. HAEMATE P [Suspect]
     Dosage: C2366911B X 2 ON 25-NOV-2013 AND 28-NOV-2013
  5. HAEMATE P [Suspect]
     Dosage: C2366911B X 2 ON 02-DEC-2013 AND 05-DEC-2013
  6. HAEMATE P [Suspect]
     Dosage: C5466911C X 2 ON 06-JAN-2014 AND 09-JAN-2014
  7. HAEMATE P [Suspect]
     Dates: start: 20140306, end: 20140306
  8. HAEMATE P [Suspect]
     Dosage: 2X
     Dates: start: 20140317, end: 20140317

REACTIONS (19)
  - Syncope [Not Recovered/Not Resolved]
  - Syncope [Recovered/Resolved]
  - Haematoma [Recovered/Resolved]
  - Arthralgia [Recovered/Resolved]
  - Headache [Recovered/Resolved]
  - Phonophobia [Recovered/Resolved]
  - Hypotension [Recovered/Resolved]
  - Injection site pain [Recovered/Resolved]
  - Pain in extremity [Recovered/Resolved]
  - Arthralgia [Recovered/Resolved]
  - Fatigue [Not Recovered/Not Resolved]
  - Anaemia [Recovered/Resolved]
  - Vomiting [Recovered/Resolved]
  - Headache [Recovered/Resolved]
  - Metrorrhagia [Recovered/Resolved]
  - Epistaxis [Recovered/Resolved]
  - Pain in extremity [Not Recovered/Not Resolved]
  - Limb discomfort [Recovering/Resolving]
  - Pain in extremity [Recovering/Resolving]
